FAERS Safety Report 9404200 (Version 4)
Quarter: 2013Q4

REPORT INFORMATION
  Report Type: Spontaneous
  Country: US (occurrence: None)
  Receive Date: 20130703
  Receipt Date: 20131024
  Transmission Date: 20140711
  Serious: Yes (Death)
  Sender: FDA-Public Use
  Company Number: 2013036739

PATIENT
  Age: 62 Year
  Sex: Female

DRUGS (1)
  1. ZEMAIRA [Suspect]
     Indication: ALPHA-1 ANTI-TRYPSIN DEFICIENCY

REACTIONS (4)
  - Death [None]
  - Terminal state [None]
  - Chronic obstructive pulmonary disease [None]
  - Hypoxia [None]
